FAERS Safety Report 5201597-4 (Version None)
Quarter: 2006Q4

REPORT INFORMATION
  Report Type: 
  Country: None (occurrence: None)
  Receive Date: 20061006
  Receipt Date: 20051221
  Transmission Date: 20070319
  Serious: Yes (Other)
  Sender: FDA-Public Use
  Company Number: 200512745BWH

PATIENT
  Age: 78 Year
  Sex: Female

DRUGS (2)
  1. CIPRO [Suspect]
     Indication: SCAB
  2. POWDERED VITAMINS [Concomitant]

REACTIONS (3)
  - DYSPEPSIA [None]
  - DYSPNOEA [None]
  - HEART RATE INCREASED [None]
